FAERS Safety Report 9013295 (Version 1)
Quarter: 2013Q1

REPORT INFORMATION
  Report Type: Spontaneous
  Country: US (occurrence: None)
  Receive Date: 20130107
  Receipt Date: 20130107
  Transmission Date: 20140127
  Serious: Yes (Disabling)
  Sender: FDA-Public Use
  Company Number: None

PATIENT
  Age: 60 Year
  Sex: Male
  Weight: 81.65 kg

DRUGS (2)
  1. LOVASTATIN [Suspect]
     Route: 048
     Dates: start: 20100115, end: 20121225
  2. RISPERDAL [Suspect]
     Route: 048
     Dates: start: 20020101, end: 20121231

REACTIONS (4)
  - Eye disorder [None]
  - Excessive eye blinking [None]
  - Lacrimal disorder [None]
  - Drug interaction [None]
